FAERS Safety Report 17788417 (Version 1)
Quarter: 2020Q2

REPORT INFORMATION
  Report Type: Spontaneous
  Country: DK (occurrence: DK)
  Receive Date: 20200515
  Receipt Date: 20200515
  Transmission Date: 20200714
  Serious: Yes (Hospitalization)
  Sender: FDA-Public Use
  Company Number: DK-TEVA-2020-DK-1234782

PATIENT
  Age: 76 Year
  Sex: Female

DRUGS (17)
  1. METOPROLOL TARTRATE. [Concomitant]
     Active Substance: METOPROLOL TARTRATE
     Indication: BLOOD PRESSURE MANAGEMENT
     Dosage: 50 MG
     Route: 048
     Dates: start: 20150227
  2. MELATONIN [Concomitant]
     Active Substance: MELATONIN
     Indication: INSOMNIA
     Dosage: 2 MG
     Route: 048
     Dates: start: 20170505
  3. DENOSUMAB [Concomitant]
     Active Substance: DENOSUMAB
     Indication: OSTEOPOROSIS
     Dosage: 1 DOSAGE FORMS 6 MONTHS
     Dates: start: 20170406
  4. VAGIFEM [Concomitant]
     Active Substance: ESTRADIOL
     Indication: HORMONE THERAPY
     Dosage: 20 MICROGRAM 1 WEEKS
     Route: 067
     Dates: start: 20141218
  5. SULFASALAZINE. [Concomitant]
     Active Substance: SULFASALAZINE
     Indication: COLITIS ULCERATIVE
     Dosage: 1000 MG
     Route: 048
  6. CALCIUM OG D-VITAMIN [Concomitant]
     Indication: VITAMIN SUPPLEMENTATION
     Dosage: 2 DOSAGE FORMS
     Route: 048
  7. BACLOFEN. [Concomitant]
     Active Substance: BACLOFEN
     Indication: MUSCLE SPASMS
     Dosage: 30 MG
     Route: 048
     Dates: start: 20180614
  8. HYPROMELLOSE [Concomitant]
     Active Substance: HYPROMELLOSES
     Indication: LACRIMATION INCREASED
     Dosage: 4 GTT
     Route: 050
     Dates: start: 20180323
  9. PANTOPRAZOLE [Concomitant]
     Active Substance: PANTOPRAZOLE
     Indication: GASTRIC ULCER
     Dosage: 40 MG
     Route: 048
     Dates: start: 20190603
  10. AMLODIPINE [Concomitant]
     Active Substance: AMLODIPINE BESYLATE
     Indication: BLOOD PRESSURE MANAGEMENT
     Dosage: 10 MG
     Route: 048
  11. LOPERAMIDE [Concomitant]
     Active Substance: LOPERAMIDE
     Indication: DIARRHOEA
     Dosage: 2 MG
     Route: 048
     Dates: start: 20190221
  12. LOSARTAN. [Concomitant]
     Active Substance: LOSARTAN
     Indication: BLOOD PRESSURE MANAGEMENT
     Dosage: 100 MG
     Route: 048
     Dates: start: 20140815
  13. OJENSALVE NEUTRAL ^OPHTHA^ [Concomitant]
     Indication: DRY EYE
     Dosage: 1 DOSAGE FORMS
     Route: 050
     Dates: start: 20180907, end: 20200323
  14. PREGABALIN ^TEVA^ [Suspect]
     Active Substance: PREGABALIN
     Indication: PAIN
     Dosage: 450 MG
     Route: 048
     Dates: start: 20200116
  15. IBUPROFEN. [Concomitant]
     Active Substance: IBUPROFEN
     Indication: MYALGIA
     Dosage: 1200 MG
     Route: 048
     Dates: start: 20171120
  16. DOLOPROCT [Concomitant]
     Active Substance: FLUOCORTOLONE PIVALATE\LIDOCAINE HYDROCHLORIDE
     Indication: HAEMORRHOIDS
     Dosage: 2 DOSAGE FORMS
     Route: 054
     Dates: start: 20171002, end: 20200323
  17. EUTHYROX [Concomitant]
     Active Substance: LEVOTHYROXINE SODIUM
     Indication: HYPOMETABOLISM
     Dosage: 75 MICROGRAM
     Route: 048
     Dates: start: 20170505

REACTIONS (3)
  - Confusional state [Unknown]
  - Muscle spasms [Unknown]
  - Fall [Unknown]
